FAERS Safety Report 6733070-6 (Version None)
Quarter: 2010Q2

REPORT INFORMATION
  Report Type: 
  Country: None (occurrence: None)
  Receive Date: 20100518
  Receipt Date: 20100503
  Transmission Date: 20101027
  Serious: Yes (Other)
  Sender: FDA-Public Use
  Company Number: 2010AL002710

PATIENT
  Age: 77 Year
  Sex: Female

DRUGS (10)
  1. TRAMADOL HCL [Suspect]
     Indication: BACK PAIN
     Dosage: 100 MG;QD;PO
     Route: 048
     Dates: start: 20100204, end: 20100215
  2. WARAN [Concomitant]
  3. ALVEDON [Concomitant]
  4. OMEPRAZOLE [Concomitant]
  5. SERTRALIN [Concomitant]
  6. METOPROLOL [Concomitant]
  7. KALEORID [Concomitant]
  8. ZYPREXA [Concomitant]
  9. KALCIPOS [Concomitant]
  10. TRIOBE [Concomitant]

REACTIONS (1)
  - INTERNATIONAL NORMALISED RATIO INCREASED [None]
